FAERS Safety Report 9139646 (Version 1)
Quarter: 2013Q1

REPORT INFORMATION
  Report Type: Spontaneous
  Country: US (occurrence: US)
  Receive Date: 20130305
  Receipt Date: 20130305
  Transmission Date: 20140127
  Serious: Yes (Other)
  Sender: FDA-Public Use
  Company Number: US-JNJFOC-20130212866

PATIENT
  Age: 4 Decade
  Sex: Female

DRUGS (3)
  1. INVEGA SUSTENNA [Suspect]
     Indication: GENERALISED ANXIETY DISORDER
     Route: 030
     Dates: start: 2013
  2. INVEGA SUSTENNA [Suspect]
     Indication: POST-TRAUMATIC STRESS DISORDER
     Route: 030
     Dates: start: 2013
  3. INVEGA SUSTENNA [Suspect]
     Indication: BIPOLAR DISORDER
     Route: 030
     Dates: start: 2013

REACTIONS (4)
  - Hallucination [Not Recovered/Not Resolved]
  - Off label use [Unknown]
  - Drug dose omission [Unknown]
  - Inappropriate schedule of drug administration [Unknown]
